FAERS Safety Report 4453695-0 (Version None)
Quarter: 2004Q3

REPORT INFORMATION
  Report Type: 
  Country: None (occurrence: None)
  Receive Date: 20040902
  Receipt Date: 20040604
  Transmission Date: 20050211
  Serious: No
  Sender: FDA-Public Use
  Company Number: 200418290BWH

PATIENT
  Age: 66 Year
  Sex: Male
  Weight: 83.9154 kg

DRUGS (7)
  1. LEVITRA [Suspect]
     Indication: ERECTILE DYSFUNCTION
     Dosage: 10 MG, TOTAL DIALY, ORAL
     Route: 048
     Dates: start: 20030901
  2. LEVITRA [Suspect]
     Indication: ERECTILE DYSFUNCTION
     Dosage: 10 MG, TOTAL DIALY, ORAL
     Route: 048
     Dates: start: 20030901
  3. LEVITRA [Suspect]
     Dosage: 20 MG, TOTAL DAILY, ORAL
     Route: 048
     Dates: start: 20030901
  4. LEVITRA [Suspect]
     Dosage: 20 MG, TOTAL DAILY, ORAL
     Route: 048
     Dates: start: 20040501
  5. TOPROL-XL [Concomitant]
  6. PRINIVIL [Concomitant]
  7. LIPITOR [Concomitant]

REACTIONS (1)
  - ERECTILE DYSFUNCTION [None]
